FAERS Safety Report 7020937-7 (Version None)
Quarter: 2010Q3

REPORT INFORMATION
  Report Type: 
  Country: None (occurrence: None)
  Receive Date: 20100929
  Receipt Date: 20100927
  Transmission Date: 20110219
  Serious: Yes (Hospitalization, Other)
  Sender: FDA-Public Use
  Company Number: US-BRISTOL-MYERS SQUIBB COMPANY-15306525

PATIENT
  Age: 82 Year
  Sex: Female
  Weight: 75 kg

DRUGS (13)
  1. COUMADIN [Suspect]
     Dosage: 2.5 MG ON SUNDAY AND TUESDAY AND 5 MG ON THE OTHER DAYS DURATION:1 YR
  2. DIGOXIN [Concomitant]
  3. DILTIAZEM CD [Concomitant]
  4. PROTONIX [Concomitant]
  5. METFORMIN [Concomitant]
  6. TRAMADOL [Concomitant]
  7. TYLENOL [Concomitant]
  8. FISH OIL [Concomitant]
  9. VITAMIN B-12 [Concomitant]
  10. VITAMIN D [Concomitant]
  11. FENTANYL-75 [Concomitant]
     Dosage: FENTANYL PATCH HYDROCODONE
  12. MORPHINE [Concomitant]
  13. ASTELIN [Concomitant]
     Dosage: ASCELIN NOSE SPRAY

REACTIONS (4)
  - BACK PAIN [None]
  - CONSTIPATION [None]
  - GLUCOSE TOLERANCE IMPAIRED [None]
  - INTERNATIONAL NORMALISED RATIO DECREASED [None]
